FAERS Safety Report 14745324 (Version 2)
Quarter: 2018Q3

REPORT INFORMATION
  Report Type: Spontaneous
  Country: DE (occurrence: DE)
  Receive Date: 20180411
  Receipt Date: 20180919
  Transmission Date: 20181010
  Serious: Yes (Other)
  Sender: FDA-Public Use
  Company Number: DE-HORIZON-PRE-0090-2018

PATIENT
  Age: 36 Year
  Sex: Female
  Weight: 60 kg

DRUGS (4)
  1. LODOTRA 5 MG [Suspect]
     Active Substance: PREDNISONE
     Indication: RHEUMATOID ARTHRITIS
     Dosage: 5 MG, QD
     Route: 048
     Dates: start: 20161216, end: 20170907
  2. URSOFALK [Suspect]
     Active Substance: URSODIOL
     Indication: CHOLESTASIS OF PREGNANCY
     Dosage: 1000 MG/D 2X500 MG/D
     Route: 048
     Dates: start: 20170822, end: 20170907
  3. ORENCIA [Suspect]
     Active Substance: ABATACEPT
     Indication: RHEUMATOID ARTHRITIS
     Dosage: 125 MG WEEKLY
     Route: 058
  4. FOLIC FORTE [Suspect]
     Active Substance: FOLIC ACID\VITAMINS
     Indication: PROPHYLAXIS OF NEURAL TUBE DEFECT
     Dosage: 0.8 MG/D TO 0.4 MG/D
     Route: 048
     Dates: start: 20170130, end: 20170907

REACTIONS (4)
  - Maternal exposure during pregnancy [Unknown]
  - Gestational diabetes [Recovered/Resolved]
  - Product use issue [Unknown]
  - Cholestasis of pregnancy [Unknown]
